FAERS Safety Report 5031806-6 (Version None)
Quarter: 2006Q2

REPORT INFORMATION
  Report Type: 
  Country: None (occurrence: None)
  Receive Date: 20060616
  Receipt Date: 20060607
  Transmission Date: 20061013
  Serious: Yes (Congenital Anomaly, Other)
  Sender: FDA-Public Use
  Company Number: 2006-04-0037

PATIENT
  Age: 1 Day
  Sex: Female
  Weight: 2.7 kg

DRUGS (5)
  1. INTRON A [Suspect]
     Indication: CHRONIC LYMPHOCYTIC LEUKAEMIA
     Dosage: 3 MIU QWK
     Dates: end: 20050729
  2. INTRON A [Suspect]
     Indication: CHRONIC LYMPHOCYTIC LEUKAEMIA
     Dosage: 3 MIU QWK
     Dates: start: 20051107
  3. GLEEVEC [Suspect]
     Indication: CHRONIC LYMPHOCYTIC LEUKAEMIA
     Dosage: 400 MG QD
     Dates: end: 20050729
  4. NEUPOGEN [Concomitant]
  5. ANTI-D IMMUNOGLOBULIN [Concomitant]

REACTIONS (2)
  - DRUG EXPOSURE DURING PREGNANCY [None]
  - FINGER HYPOPLASIA [None]
